FAERS Safety Report 10389454 (Version 3)
Quarter: 2014Q4

REPORT INFORMATION
  Report Type: Spontaneous
  Country: US (occurrence: US)
  Receive Date: 20140818
  Receipt Date: 20141007
  Transmission Date: 20150528
  Serious: Yes (Other)
  Sender: FDA-Public Use
  Company Number: US-AMGEN-USASP2014061568

PATIENT
  Age: 21 Year
  Sex: Female
  Weight: 45 kg

DRUGS (2)
  1. NPLATE [Suspect]
     Active Substance: ROMIPLOSTIM
     Indication: IMMUNE THROMBOCYTOPENIC PURPURA
     Dosage: 8 MUG/KG, QWK
     Route: 058
     Dates: start: 2010
  2. MYCOPHENOLATE [Concomitant]
     Active Substance: MYCOPHENOLIC ACID
     Indication: AUTOIMMUNE LYMPHOPROLIFERATIVE SYNDROME

REACTIONS (5)
  - Platelet count decreased [Unknown]
  - Menorrhagia [Unknown]
  - Therapeutic response decreased [Unknown]
  - Gingival bleeding [Unknown]
  - Eosinophilia [Unknown]

NARRATIVE: CASE EVENT DATE: 201406
